FAERS Safety Report 8112571-2 (Version None)
Quarter: 2012Q1

REPORT INFORMATION
  Report Type: 
  Country: None (occurrence: None)
  Receive Date: 20120203
  Receipt Date: 20120131
  Transmission Date: 20120608
  Serious: No
  Sender: FDA-Public Use
  Company Number: US-TEVA-320481USA

PATIENT
  Sex: Female

DRUGS (1)
  1. PLAN B ONE-STEP [Suspect]
     Indication: POST COITAL CONTRACEPTION
     Dosage: 1.5 MILLIGRAM;
     Route: 048
     Dates: start: 20120122, end: 20120122

REACTIONS (5)
  - DIZZINESS [None]
  - MENSTRUATION IRREGULAR [None]
  - BREAST TENDERNESS [None]
  - POLLAKIURIA [None]
  - ABDOMINAL PAIN [None]
